FAERS Safety Report 16053099 (Version 2)
Quarter: 2019Q1

REPORT INFORMATION
  Report Type: Spontaneous
  Country: US (occurrence: US)
  Receive Date: 20190308
  Receipt Date: 20190322
  Transmission Date: 20190418
  Serious: Yes (Other)
  Sender: FDA-Public Use
  Company Number: US-BAYER-2019-044425

PATIENT
  Age: 34 Year
  Sex: Female

DRUGS (2)
  1. POLYETHYLENE GLYCOL 3350. [Concomitant]
     Active Substance: POLYETHYLENE GLYCOL 3350
  2. MIRALAX [Suspect]
     Active Substance: POLYETHYLENE GLYCOL 3350
     Dosage: UNK

REACTIONS (7)
  - Intentional self-injury [None]
  - Obsessive-compulsive disorder [None]
  - Pain [None]
  - Toxicity to various agents [None]
  - Aggression [None]
  - Screaming [None]
  - Dysbacteriosis [None]
